FAERS Safety Report 9735028 (Version 2)
Quarter: 2013Q4

REPORT INFORMATION
  Report Type: Spontaneous
  Country: US (occurrence: US)
  Receive Date: 20131206
  Receipt Date: 20131209
  Transmission Date: 20140711
  Serious: Yes (Death, Other)
  Sender: FDA-Public Use
  Company Number: US-009507513-1312USA001027

PATIENT
  Sex: Male

DRUGS (4)
  1. JANUVIA [Suspect]
     Indication: DIABETES MELLITUS
     Dosage: 100 MG, UNK
     Route: 048
     Dates: start: 20120308, end: 201212
  2. JANUVIA [Suspect]
     Dosage: 100 MG, UNK
     Route: 048
     Dates: start: 201212, end: 20130116
  3. GLYBURIDE [Concomitant]
  4. METFORMIN [Concomitant]

REACTIONS (4)
  - Pancreatic carcinoma [Fatal]
  - Abdominal discomfort [Unknown]
  - Metastases to liver [Fatal]
  - Metastases to lung [Fatal]
